FAERS Safety Report 5494388-0 (Version None)
Quarter: 2007Q4

REPORT INFORMATION
  Report Type: 
  Country: None (occurrence: None)
  Receive Date: 20071024
  Receipt Date: 20071017
  Transmission Date: 20080405
  Serious: Yes (Death)
  Sender: FDA-Public Use
  Company Number: GB-BRISTOL-MYERS SQUIBB COMPANY-13946579

PATIENT

DRUGS (5)
  1. CISPLATIN [Suspect]
     Indication: GERM CELL CANCER
  2. ETOPOSIDE [Suspect]
     Indication: GERM CELL CANCER
  3. METHOTREXATE [Suspect]
     Indication: GERM CELL CANCER
  4. DACTINOMYCIN [Suspect]
     Indication: GERM CELL CANCER
  5. NEUPOGEN [Concomitant]

REACTIONS (1)
  - SEPSIS [None]
